FAERS Safety Report 12255082 (Version 1)
Quarter: 2016Q2

REPORT INFORMATION
  Report Type: Spontaneous
  Country: US (occurrence: US)
  Receive Date: 20160411
  Receipt Date: 20160411
  Transmission Date: 20160815
  Serious: No
  Sender: FDA-Public Use
  Company Number: US-009507513-1603USA013058

PATIENT
  Sex: Male

DRUGS (4)
  1. PROVENTIL [Suspect]
     Active Substance: ALBUTEROL
     Dosage: 90 MICROGRAM/ 2 PUFFS, BID
     Route: 055
     Dates: start: 2008
  2. PROVENTIL [Suspect]
     Active Substance: ALBUTEROL
     Indication: CHRONIC OBSTRUCTIVE PULMONARY DISEASE
     Dosage: 90 MICROGRAM/ 2 PUFFS, BID
     Route: 055
     Dates: start: 2008
  3. ADVAIR HFA [Concomitant]
     Active Substance: FLUTICASONE PROPIONATE\SALMETEROL XINAFOATE
  4. SPIRIVA [Concomitant]
     Active Substance: TIOTROPIUM BROMIDE MONOHYDRATE

REACTIONS (3)
  - Dyspnoea [Recovering/Resolving]
  - Product quality issue [Unknown]
  - Drug dose omission [Unknown]
